FAERS Safety Report 14015405 (Version 2)
Quarter: 2017Q4

REPORT INFORMATION
  Report Type: Spontaneous
  Country: US (occurrence: US)
  Receive Date: 20170927
  Receipt Date: 20171004
  Transmission Date: 20180321
  Serious: Yes (Hospitalization)
  Sender: FDA-Public Use
  Company Number: US-TORRENT-00003430

PATIENT
  Age: 20 Month
  Sex: Female

DRUGS (5)
  1. ARIPIPRAZOLE. [Suspect]
     Active Substance: ARIPIPRAZOLE
  2. ALPRAZOLAM. [Suspect]
     Active Substance: ALPRAZOLAM
  3. CLONAZEPAM. [Suspect]
     Active Substance: CLONAZEPAM
  4. BUSPIRONE [Suspect]
     Active Substance: BUSPIRONE HYDROCHLORIDE
  5. FLUVOXAMINE [Suspect]
     Active Substance: FLUVOXAMINE

REACTIONS (4)
  - Drug screen false positive [Unknown]
  - Accidental exposure to product by child [Unknown]
  - Dysstasia [Recovered/Resolved]
  - Sluggishness [Recovered/Resolved]
